FAERS Safety Report 5988785-4 (Version None)
Quarter: 2008Q4

REPORT INFORMATION
  Report Type: 
  Country: None (occurrence: None)
  Receive Date: 20081210
  Receipt Date: 20081121
  Transmission Date: 20090506
  Serious: Yes (Death)
  Sender: FDA-Public Use
  Company Number: GB-TEVA-179135ISR

PATIENT
  Age: 48 Year
  Sex: Male
  Weight: 80 kg

DRUGS (3)
  1. CARBOPLATIN [Suspect]
     Indication: PROSTATE CANCER
  2. PACLITAXEL [Suspect]
     Indication: PROSTATE CANCER
  3. DASATINIB [Suspect]
     Route: 048
     Dates: start: 20080820, end: 20080925

REACTIONS (1)
  - MALIGNANT NEOPLASM PROGRESSION [None]
